FAERS Safety Report 20680164 (Version 1)
Quarter: 2022Q2

REPORT INFORMATION
  Report Type: Other
  Country: US (occurrence: None)
  Receive Date: 20220406
  Receipt Date: 20220406
  Transmission Date: 20220720
  Serious: Yes (Other)
  Sender: FDA-Public Use
  Company Number: US-ROCHE-2745734

PATIENT
  Age: 36 Year
  Sex: Female
  Weight: 90.800 kg

DRUGS (2)
  1. OCREVUS [Suspect]
     Active Substance: OCRELIZUMAB
     Indication: Primary progressive multiple sclerosis
     Route: 042
  2. OCREVUS [Suspect]
     Active Substance: OCRELIZUMAB
     Indication: Relapsing multiple sclerosis

REACTIONS (9)
  - Multiple sclerosis relapse [Unknown]
  - Stress [Unknown]
  - Maternal exposure during pregnancy [Unknown]
  - Accident at work [Unknown]
  - Off label use [Unknown]
  - Peroneal nerve palsy [Not Recovered/Not Resolved]
  - Pain [Unknown]
  - COVID-19 [Recovered/Resolved]
  - Asthenia [Not Recovered/Not Resolved]

NARRATIVE: CASE EVENT DATE: 20200301
